FAERS Safety Report 5205696-2 (Version None)
Quarter: 2007Q1

REPORT INFORMATION
  Report Type: 
  Country: None (occurrence: None)
  Receive Date: 20070111
  Receipt Date: 20070105
  Transmission Date: 20070707
  Serious: Yes (Disabling)
  Sender: FDA-Public Use
  Company Number: PHEH2006US14514

PATIENT
  Age: 65 Year
  Sex: Male
  Weight: 74.829 kg

DRUGS (8)
  1. LAMISIL [Suspect]
     Indication: NAIL TINEA
     Dosage: 250 MG, QD
     Route: 048
     Dates: start: 20061013, end: 20061110
  2. PLAQUENIL [Concomitant]
  3. TOPROL-XL [Concomitant]
  4. MICARDIS [Concomitant]
  5. HYDROCHLOROTHIAZIDE [Concomitant]
  6. PRAVACHOL [Concomitant]
  7. PAXIL [Concomitant]
  8. ASPIRIN [Concomitant]

REACTIONS (1)
  - RETINAL HAEMORRHAGE [None]
